FAERS Safety Report 9791360 (Version 2)
Quarter: 2014Q1

REPORT INFORMATION
  Report Type: Spontaneous
  Country: US (occurrence: US)
  Receive Date: 20140101
  Receipt Date: 20140116
  Transmission Date: 20141002
  Serious: No
  Sender: FDA-Public Use
  Company Number: US-009507513-1312USA009071

PATIENT
  Sex: Female
  Weight: 90.7 kg

DRUGS (3)
  1. OXYTROL FOR WOMEN [Suspect]
     Indication: URGE INCONTINENCE
     Dosage: 1 DF, Q3D
     Route: 062
     Dates: start: 201311, end: 201312
  2. OXYTROL FOR WOMEN [Suspect]
     Indication: STRESS URINARY INCONTINENCE
  3. IBUPROFEN [Concomitant]
     Indication: OSTEOARTHRITIS
     Dosage: UNK, UNKNOWN

REACTIONS (5)
  - Application site swelling [Recovered/Resolved]
  - Erythema [Recovered/Resolved]
  - Pruritus [Recovered/Resolved]
  - Drug effect decreased [Unknown]
  - Product quality issue [Unknown]
